FAERS Safety Report 15863246 (Version 1)
Quarter: 2019Q1

REPORT INFORMATION
  Report Type: Report from Study
  Country: US (occurrence: US)
  Receive Date: 20190124
  Receipt Date: 20190124
  Transmission Date: 20190417
  Serious: No
  Sender: FDA-Public Use
  Company Number: PHEH2019US003250

PATIENT
  Sex: Male

DRUGS (1)
  1. COSENTYX [Suspect]
     Active Substance: SECUKINUMAB
     Indication: PSORIATIC ARTHROPATHY
     Route: 058

REACTIONS (5)
  - Nail disorder [Unknown]
  - Fatigue [Not Recovered/Not Resolved]
  - Onychoclasis [Not Recovered/Not Resolved]
  - Skin fissures [Unknown]
  - Device malfunction [Unknown]
